FAERS Safety Report 9326557 (Version 1)
Quarter: 2013Q2

REPORT INFORMATION
  Report Type: Spontaneous
  Country: US (occurrence: None)
  Receive Date: 20130603
  Receipt Date: 20130603
  Transmission Date: 20140414
  Serious: Yes (Hospitalization)
  Sender: FDA-Public Use
  Company Number: None

PATIENT
  Age: 30 Year
  Sex: Female
  Weight: 66.68 kg

DRUGS (2)
  1. LEXAPRO [Suspect]
     Indication: ANXIETY
  2. ESCITALOPRAM [Suspect]

REACTIONS (3)
  - Pruritus [None]
  - Swelling face [None]
  - Rash [None]
